FAERS Safety Report 8315239-2 (Version None)
Quarter: 2012Q2

REPORT INFORMATION
  Report Type: 
  Country: None (occurrence: None)
  Receive Date: 20120426
  Receipt Date: 20120423
  Transmission Date: 20120825
  Serious: Yes (Disabling, Other)
  Sender: FDA-Public Use
  Company Number: BR-BAYER-2011-113494

PATIENT
  Age: 40 Year
  Sex: Female

DRUGS (9)
  1. CLONAZEPAM [Concomitant]
     Indication: OTOSCLEROSIS
  2. BETASERON [Suspect]
     Indication: RELAPSING-REMITTING MULTIPLE SCLEROSIS
     Dosage: 9.6 MIU, QOD
     Route: 058
     Dates: start: 20091030, end: 20111122
  3. IBUPROFEN [Concomitant]
     Indication: INFLUENZA LIKE ILLNESS
     Dosage: UNK
     Route: 048
     Dates: start: 20100930
  4. CLONAZEPAM [Concomitant]
     Indication: SLEEP DISORDER THERAPY
     Dosage: 1 DF, QD
     Route: 048
     Dates: start: 20070101
  5. MECLIZINE HYDROCHLORIDE [Concomitant]
     Indication: DIZZINESS
     Dosage: 25 MG, QD
     Route: 048
     Dates: start: 20070101
  6. DIPYRONE TAB [Concomitant]
     Indication: HEADACHE
     Dosage: 32 GTT, PRN
     Route: 048
     Dates: start: 20110501
  7. IBUPROFEN [Concomitant]
     Indication: PREMEDICATION
     Dosage: 1 DF, QOD
     Route: 048
     Dates: start: 20091030
  8. MECLIZINE HYDROCHLORIDE [Concomitant]
     Indication: NAUSEA
  9. DIPYRONE TAB [Concomitant]
     Indication: PYREXIA

REACTIONS (15)
  - INFLUENZA LIKE ILLNESS [None]
  - VOMITING [None]
  - TREMOR [None]
  - MUSCULAR WEAKNESS [None]
  - CHILLS [None]
  - HEADACHE [None]
  - PAIN [None]
  - FATIGUE [None]
  - PYREXIA [None]
  - ASTHENIA [None]
  - LEFT VENTRICULAR DYSFUNCTION [None]
  - ABASIA [None]
  - INFLUENZA [None]
  - MULTIPLE SCLEROSIS [None]
  - LABYRINTHITIS [None]
